FAERS Safety Report 12961832 (Version 2)
Quarter: 2016Q4

REPORT INFORMATION
  Report Type: Spontaneous
  Country: DE (occurrence: DE)
  Receive Date: 20161121
  Receipt Date: 20161220
  Transmission Date: 20170207
  Serious: Yes (Other)
  Sender: FDA-Public Use
  Company Number: DE-PFIZER INC-2016525427

PATIENT
  Age: 56 Year
  Sex: Female

DRUGS (7)
  1. AKINETON [Suspect]
     Active Substance: BIPERIDEN HYDROCHLORIDE
     Dosage: 1 MG, 2X/DAY (2 X 0.5 TABLET )
  2. LYRICA [Suspect]
     Active Substance: PREGABALIN
     Indication: AGITATION
     Dosage: 50 MG, 3X/DAY
     Dates: start: 20161025
  3. LYRICA [Suspect]
     Active Substance: PREGABALIN
     Indication: NERVOUSNESS
     Dosage: 50 MG, 4X/DAY
  4. AKINETON [Suspect]
     Active Substance: BIPERIDEN HYDROCHLORIDE
     Dosage: 4 MG, DAILY (2 MG - 2 TABLETS PER DAY)
  5. LYRICA [Suspect]
     Active Substance: PREGABALIN
     Indication: RESTLESSNESS
     Dosage: 100 MG, 2X/DAY
     Dates: start: 20160817, end: 20161024
  6. LYRICA [Suspect]
     Active Substance: PREGABALIN
     Indication: ANXIETY DISORDER
     Dosage: 50 MG, 4 TIMES A DAY
     Dates: start: 20160721, end: 20160816
  7. AKINETON [Suspect]
     Active Substance: BIPERIDEN HYDROCHLORIDE
     Dosage: HIGH DOSED

REACTIONS (20)
  - Nausea [Not Recovered/Not Resolved]
  - Weight decreased [Unknown]
  - Restlessness [Not Recovered/Not Resolved]
  - Psychomotor hyperactivity [Not Recovered/Not Resolved]
  - Panic attack [Not Recovered/Not Resolved]
  - Nervousness [Unknown]
  - Amnesia [Not Recovered/Not Resolved]
  - Tremor [Unknown]
  - Salivary hypersecretion [Unknown]
  - Aggression [Unknown]
  - Schizophrenia [Unknown]
  - Confusional state [Unknown]
  - Vision blurred [Unknown]
  - Memory impairment [Unknown]
  - Akinesia [Unknown]
  - Chills [Unknown]
  - Movement disorder [Unknown]
  - Alopecia [Unknown]
  - Hyperhidrosis [Unknown]
  - Malaise [Unknown]

NARRATIVE: CASE EVENT DATE: 201608
